FAERS Safety Report 23259874 (Version 4)
Quarter: 2024Q2

REPORT INFORMATION
  Report Type: Spontaneous
  Country: US (occurrence: US)
  Receive Date: 20231204
  Receipt Date: 20240411
  Transmission Date: 20240716
  Serious: Yes (Other)
  Sender: FDA-Public Use
  Company Number: US-PFIZER INC-202300422576

PATIENT
  Age: 76 Year
  Sex: Female
  Weight: 59.41 kg

DRUGS (1)
  1. SOMAVERT [Suspect]
     Active Substance: PEGVISOMANT
     Dosage: 15 MG, 1X/DAY

REACTIONS (4)
  - Pancreatic failure [Unknown]
  - Malaise [Unknown]
  - Weight decreased [Unknown]
  - Abdominal discomfort [Unknown]
